FAERS Safety Report 4293352-7 (Version None)
Quarter: 2004Q1

REPORT INFORMATION
  Report Type: 
  Country: None (occurrence: None)
  Receive Date: 20040210
  Receipt Date: 20040204
  Transmission Date: 20041129
  Serious: Yes (Death, Hospitalization)
  Sender: FDA-Public Use
  Company Number: KDL028197

PATIENT
  Age: 80 Year
  Sex: Female
  Weight: 72.6 kg

DRUGS (11)
  1. PROCRIT [Suspect]
     Indication: ANAEMIA OF MALIGNANT DISEASE
     Dosage: WEEKLY
     Dates: start: 20000101
  2. PAROXETINE HCL [Concomitant]
  3. DONEPEZIL HCL [Concomitant]
  4. RISPERIDONE [Concomitant]
  5. PAMIDRONATE DISODIUM [Concomitant]
  6. CYANOCOBALAMIN [Concomitant]
  7. LETROZOLE [Concomitant]
  8. ROSIGLITAZONE MALEATE [Concomitant]
  9. GLIPIZIDE [Concomitant]
  10. FERROUS SULFATE TAB [Concomitant]
  11. VALPROATE SEMISODIUM [Concomitant]

REACTIONS (4)
  - DEPRESSION [None]
  - DYSPNOEA [None]
  - LYMPHOEDEMA [None]
  - OEDEMA PERIPHERAL [None]
